FAERS Safety Report 10136532 (Version 1)
Quarter: 2014Q2

REPORT INFORMATION
  Report Type: Spontaneous
  Country: US (occurrence: None)
  Receive Date: 20140425
  Receipt Date: 20140425
  Transmission Date: 20141212
  Serious: Yes (Other)
  Sender: FDA-Public Use
  Company Number: 2014CP000053

PATIENT
  Sex: Female

DRUGS (1)
  1. OFIRMEV [Suspect]
     Indication: PRODUCT USED FOR UNKNOWN INDICATION

REACTIONS (3)
  - Multi-organ failure [None]
  - Renal failure acute [None]
  - Renal tubular necrosis [None]
